FAERS Safety Report 9735529 (Version 1)
Quarter: 2013Q4

REPORT INFORMATION
  Report Type: Spontaneous
  Country: US (occurrence: US)
  Receive Date: 20131206
  Receipt Date: 20131206
  Transmission Date: 20140711
  Serious: No
  Sender: FDA-Public Use
  Company Number: US-GILEAD-2009-0023529

PATIENT
  Sex: Female
  Weight: 54.43 kg

DRUGS (18)
  1. LETAIRIS [Suspect]
     Indication: PULMONARY ARTERIAL HYPERTENSION
     Route: 048
     Dates: start: 20090501
  2. FLOLAN [Concomitant]
  3. REVATIO [Concomitant]
  4. OXYGEN [Concomitant]
  5. TRACLEER [Concomitant]
  6. GLEEVEC [Concomitant]
  7. NEXIUM [Concomitant]
  8. NORVASC [Concomitant]
  9. METOLAZONE [Concomitant]
  10. DIGOXIN [Concomitant]
  11. METOPROLOL [Concomitant]
  12. PROPAFENONE [Concomitant]
  13. LASIX [Concomitant]
  14. IMODIUM [Concomitant]
  15. IRON [Concomitant]
  16. TYLENOL [Concomitant]
  17. ALDACTONE [Concomitant]
  18. SYNTHROID [Concomitant]

REACTIONS (1)
  - Unevaluable event [Unknown]
